FAERS Safety Report 13981723 (Version 1)
Quarter: 2017Q3

REPORT INFORMATION
  Report Type: Spontaneous
  Country: US (occurrence: US)
  Receive Date: 20170918
  Receipt Date: 20170918
  Transmission Date: 20171128
  Serious: No
  Sender: FDA-Public Use
  Company Number: US-BION-006294

PATIENT
  Age: 78 Year
  Sex: Female
  Weight: 58.51 kg

DRUGS (1)
  1. ZYRTEC [Suspect]
     Active Substance: CETIRIZINE HYDROCHLORIDE
     Indication: RHINORRHOEA
     Dosage: 1 TABLET DAILY
     Route: 048
     Dates: start: 20170501

REACTIONS (1)
  - Intentional product misuse [Not Recovered/Not Resolved]
